FAERS Safety Report 6169345-1 (Version None)
Quarter: 2009Q2

REPORT INFORMATION
  Report Type: 
  Country: None (occurrence: None)
  Receive Date: 20090424
  Receipt Date: 20090414
  Transmission Date: 20091009
  Serious: Yes (Hospitalization)
  Sender: FDA-Public Use
  Company Number: 1000005899

PATIENT
  Age: 86 Year
  Sex: Female

DRUGS (7)
  1. CITALOPRAM HYDROBROMIDE [Suspect]
     Dosage: 40 MG (20 MG, 2 IN 1 D), ORAL
     Route: 048
  2. PREVISCAN (20 MILLIGRAM, TABLETS) [Suspect]
     Dosage: SEE IMAGE
     Route: 048
     Dates: end: 20081203
  3. AMIODARONE HCL [Suspect]
     Dosage: (200 MG), ORAL
     Route: 048
  4. TAHOR (TABLETS) [Suspect]
     Dosage: 10 MG (10 MG, 1 IN 1 D), ORAL
     Route: 048
  5. PERINDOPRIL ERBUMINE [Concomitant]
  6. ESIDRIX [Concomitant]
  7. LORAZEPAM [Concomitant]

REACTIONS (6)
  - ARTHRALGIA [None]
  - BLOOD CREATINE PHOSPHOKINASE INCREASED [None]
  - FALL [None]
  - INTERNATIONAL NORMALISED RATIO INCREASED [None]
  - MUSCLE HAEMORRHAGE [None]
  - PAIN [None]
